FAERS Safety Report 25811720 (Version 1)
Quarter: 2025Q3

REPORT INFORMATION
  Report Type: Spontaneous
  Country: US (occurrence: US)
  Receive Date: 20250917
  Receipt Date: 20250917
  Transmission Date: 20251021
  Serious: No
  Sender: EPIC PHARM
  Company Number: US-EPICPHARMA-US-2025EPCSPO00992

PATIENT

DRUGS (10)
  1. DOXYCYCLINE HYCLATE [Suspect]
     Active Substance: DOXYCYCLINE HYCLATE
     Indication: Mycobacterium avium complex infection
     Route: 065
  2. RIFAMPIN [Suspect]
     Active Substance: RIFAMPIN
     Indication: Mycobacterium avium complex infection
     Route: 065
  3. ETHAMBUTOL HYDROCHLORIDE [Suspect]
     Active Substance: ETHAMBUTOL HYDROCHLORIDE
     Indication: Mycobacterium avium complex infection
     Route: 065
  4. MINOCYCLINE [Suspect]
     Active Substance: MINOCYCLINE HYDROCHLORIDE
     Indication: Mycobacterium avium complex infection
     Route: 065
  5. AMIKACIN [Concomitant]
     Active Substance: AMIKACIN
     Route: 042
  6. AMIKACIN [Concomitant]
     Active Substance: AMIKACIN
  7. LINEZOLID [Concomitant]
     Active Substance: LINEZOLID
     Route: 065
  8. MOXIFLOXACIN [Concomitant]
     Active Substance: MOXIFLOXACIN
     Route: 065
  9. RIFABUTIN [Concomitant]
     Active Substance: RIFABUTIN
     Route: 065
  10. CLARITHROMYCIN [Concomitant]
     Active Substance: CLARITHROMYCIN
     Route: 065

REACTIONS (2)
  - Minimum inhibitory concentration increased [Unknown]
  - Product use in unapproved indication [Unknown]
